FAERS Safety Report 13896873 (Version 1)
Quarter: 2017Q3

REPORT INFORMATION
  Report Type: Spontaneous
  Country: US (occurrence: US)
  Receive Date: 20170823
  Receipt Date: 20170823
  Transmission Date: 20171127
  Serious: Yes (Hospitalization, Other)
  Sender: FDA-Public Use
  Company Number: US-IMPAX LABORATORIES, INC-2017-IPXL-02459

PATIENT
  Age: 16 Year
  Sex: Male

DRUGS (2)
  1. LEVETIRACETAM. [Suspect]
     Active Substance: LEVETIRACETAM
     Indication: EPILEPSY
     Dosage: UNK
     Route: 065
  2. DIVALPROEX SODIUM ER [Suspect]
     Active Substance: DIVALPROEX SODIUM
     Indication: EPILEPSY
     Dosage: BOLUSED WITH VPA (15 MG/KG), UNK
     Route: 050

REACTIONS (5)
  - Toxicity to various agents [Recovered/Resolved]
  - Thrombotic microangiopathy [Recovered/Resolved]
  - Multiple organ dysfunction syndrome [Recovered/Resolved]
  - Drug-induced liver injury [Recovered/Resolved]
  - Vomiting [Unknown]
